FAERS Safety Report 4317956-8 (Version None)
Quarter: 2004Q1

REPORT INFORMATION
  Report Type: 
  Country: None (occurrence: None)
  Receive Date: 20040316
  Receipt Date: 20040220
  Transmission Date: 20041129
  Serious: Yes (Hospitalization, Other)
  Sender: FDA-Public Use
  Company Number: JP-GLAXOSMITHKLINE-B0324353A

PATIENT
  Age: 55 Year
  Sex: Male
  Weight: 56 kg

DRUGS (16)
  1. VALTREX [Suspect]
     Indication: HERPES ZOSTER
     Dosage: 1000MG PER DAY
     Route: 048
     Dates: start: 20040216, end: 20040218
  2. NICORANDIL [Concomitant]
     Route: 048
  3. PRECIPITATED CALCIUM CARBONATE [Concomitant]
     Route: 048
  4. MECOBALAMIN [Concomitant]
  5. ALLOPURINOL [Concomitant]
     Route: 048
  6. OMEPRAZOLE [Concomitant]
     Route: 048
  7. NITROGLYCERIN [Concomitant]
  8. SENNOSIDE [Concomitant]
     Route: 048
  9. AMEZINIUM METHYLSULPHATE [Concomitant]
     Route: 048
  10. SODIUM VALPROATE [Concomitant]
     Route: 048
  11. ISOSORBIDE MONONITRATE [Concomitant]
     Route: 048
  12. SERRAPEPTASE [Concomitant]
     Route: 048
  13. LOXOPROFEN SODIUM [Concomitant]
     Indication: HERPES ZOSTER
     Route: 048
     Dates: start: 20040216, end: 20040302
  14. TEPRENONE [Concomitant]
     Indication: HERPES ZOSTER
     Route: 048
     Dates: start: 20040216, end: 20040302
  15. UNSPECIFIED MEDICATION [Concomitant]
  16. DIALYSIS [Concomitant]

REACTIONS (11)
  - CONDITION AGGRAVATED [None]
  - DEPRESSED LEVEL OF CONSCIOUSNESS [None]
  - DISCOMFORT [None]
  - DYSARTHRIA [None]
  - DYSKINESIA [None]
  - DYSLALIA [None]
  - FEELING HOT [None]
  - MENTAL DISORDER [None]
  - RESTLESSNESS [None]
  - STRESS SYMPTOMS [None]
  - VERTIGO [None]
